FAERS Safety Report 10981872 (Version 2)
Quarter: 2015Q2

REPORT INFORMATION
  Report Type: Spontaneous
  Country: CN (occurrence: CN)
  Receive Date: 20150402
  Receipt Date: 20150421
  Transmission Date: 20150821
  Serious: No
  Sender: FDA-Public Use
  Company Number: ALCN2015CN002223

PATIENT
  Sex: Female
  Weight: 72 kg

DRUGS (1)
  1. SYSTANE (HYPROMELLOSE 2910 (4000 MPA.S)) [Suspect]
     Active Substance: HYPROMELLOSE 2910 (4000 MPA.S)
     Indication: POSTOPERATIVE CARE
     Dosage: 1 DF, PRN
     Route: 047

REACTIONS (2)
  - Eye inflammation [Recovering/Resolving]
  - Conjunctival oedema [Recovering/Resolving]
